FAERS Safety Report 6491899-6 (Version None)
Quarter: 2009Q4

REPORT INFORMATION
  Report Type: 
  Country: None (occurrence: None)
  Receive Date: 20091125
  Receipt Date: 20090804
  Transmission Date: 20100525
  Serious: Yes (Other)
  Sender: FDA-Public Use
  Company Number: 2009BH012418

PATIENT
  Age: 62 Year
  Sex: Female

DRUGS (21)
  1. DIANEAL [Suspect]
     Indication: PERITONEAL DIALYSIS
     Dosage: 6 L ; EVERY DAY ; IP
     Route: 033
     Dates: start: 20090301
  2. DIANEAL [Suspect]
     Indication: PERITONEAL DIALYSIS
     Dosage: 2 L ; EVERY DAY ; IP
     Route: 033
     Dates: start: 20090301
  3. GLIPIZIDE [Concomitant]
  4. COLACE [Concomitant]
  5. CIPRO [Concomitant]
  6. COREG [Concomitant]
  7. EPOGEN [Concomitant]
  8. PREVACID [Concomitant]
  9. ERGOCALCIFEROL [Concomitant]
  10. NIFEDIPINE [Concomitant]
  11. FERROUS SULFATE TAB [Concomitant]
  12. DIATX [Concomitant]
  13. SORBITOL [Concomitant]
  14. BICITRA [Concomitant]
  15. LOVASTATIN [Concomitant]
  16. FUROSEMIDE [Concomitant]
  17. CALCIUM CARBONATE [Concomitant]
  18. DIPHENHYDRAMINE [Concomitant]
  19. CLONIDINE [Concomitant]
  20. FOLIC ACID [Concomitant]
  21. FOSRENOL [Concomitant]

REACTIONS (2)
  - CONSTIPATION [None]
  - PERITONITIS BACTERIAL [None]
